FAERS Safety Report 25232923 (Version 3)
Quarter: 2025Q4

REPORT INFORMATION
  Report Type: Report from Study
  Country: US (occurrence: None)
  Receive Date: 20250424
  Receipt Date: 20251121
  Transmission Date: 20260118
  Serious: Yes (Other)
  Sender: UCB
  Company Number: US-UCBSA-2025023850

PATIENT
  Age: 20 Year
  Weight: 62.7 kg

DRUGS (1)
  1. FENFLURAMINE HYDROCHLORIDE [Suspect]
     Active Substance: FENFLURAMINE HYDROCHLORIDE
     Indication: Seizure
     Dosage: 0.41 MG/KG/DAY (25.9 MG/DAY)

REACTIONS (1)
  - Pericardial effusion [Not Recovered/Not Resolved]
